FAERS Safety Report 9245868 (Version 4)
Quarter: 2013Q4

REPORT INFORMATION
  Report Type: Spontaneous
  Country: US (occurrence: US)
  Receive Date: 20130422
  Receipt Date: 20131001
  Transmission Date: 20140711
  Serious: Yes (Hospitalization, Other)
  Sender: FDA-Public Use
  Company Number: US-JNJFOC-20130411607

PATIENT
  Sex: Male
  Weight: 77 kg

DRUGS (17)
  1. REMICADE [Suspect]
     Indication: CROHN^S DISEASE
     Route: 042
     Dates: start: 20000810, end: 20000810
  2. AZATHIOPRINE [Suspect]
     Indication: CROHN^S DISEASE
     Route: 048
     Dates: start: 2000
  3. ASACOL [Concomitant]
     Indication: CROHN^S DISEASE
     Route: 048
  4. PREDNISONE [Concomitant]
     Indication: CROHN^S DISEASE
     Route: 048
  5. VERAPAMIL [Concomitant]
     Indication: HYPERTENSION
     Route: 048
  6. VERAPAMIL [Concomitant]
     Indication: CARDIOMYOPATHY
     Route: 048
  7. NORPACE [Concomitant]
     Indication: CARDIOMYOPATHY
     Route: 048
  8. FOLATE [Concomitant]
     Indication: VITAMIN SUPPLEMENTATION
     Route: 048
  9. SYNTHROID [Concomitant]
     Indication: HYPOTHYROIDISM
     Route: 048
  10. IRON [Concomitant]
     Indication: ANAEMIA
     Route: 048
  11. METHYLPHENIDATE [Concomitant]
     Route: 065
  12. PROVIGIL [Concomitant]
     Route: 065
  13. FOLIC ACID [Concomitant]
     Route: 065
  14. TOPROL [Concomitant]
     Route: 065
  15. NORVASC [Concomitant]
     Route: 065
  16. ASPIRIN [Concomitant]
     Route: 065
  17. DESIPRAMINE [Concomitant]
     Route: 065

REACTIONS (1)
  - Prostate cancer [Unknown]
